FAERS Safety Report 9278938 (Version 2)
Quarter: 2013Q2

REPORT INFORMATION
  Report Type: Report from Study
  Country: AR (occurrence: AR)
  Receive Date: 20130508
  Receipt Date: 20130521
  Transmission Date: 20140414
  Serious: Yes (Hospitalization)
  Sender: FDA-Public Use
  Company Number: AR-ABBOTT-13P-007-1084175-00

PATIENT
  Age: 48 Year
  Sex: Female

DRUGS (3)
  1. HUMIRA [Suspect]
     Indication: RHEUMATOID ARTHRITIS
     Route: 058
     Dates: start: 20120118, end: 20130416
  2. HUMIRA [Suspect]
     Route: 058
     Dates: start: 201305
  3. ARTRAIT [Suspect]

REACTIONS (3)
  - Furuncle [Recovered/Resolved]
  - Furuncle [Recovered/Resolved]
  - Immunodeficiency [Recovering/Resolving]
